FAERS Safety Report 16463814 (Version 7)
Quarter: 2019Q3

REPORT INFORMATION
  Report Type: Spontaneous
  Country: JP (occurrence: JP)
  Receive Date: 20190621
  Receipt Date: 20190925
  Transmission Date: 20191004
  Serious: Yes (Hospitalization, Other)
  Sender: FDA-Public Use
  Company Number: JP-AMGEN-JPNSP2019097767

PATIENT
  Age: 69 Year
  Sex: Male
  Weight: 72.3 kg

DRUGS (18)
  1. OXAROL [Concomitant]
     Active Substance: MAXACALCITOL
     Dosage: 7.5 MICROGRAM, QWK
     Route: 042
     Dates: start: 20190608
  2. WARFARIN [Concomitant]
     Active Substance: WARFARIN
     Dosage: 2 MILLIGRAM, QD
     Route: 065
     Dates: start: 20190424, end: 20190508
  3. EPOETIN ALFA [Concomitant]
     Active Substance: ERYTHROPOIETIN
     Dosage: 2250 INTERNATIONAL UNIT, QWK
     Route: 065
     Dates: start: 20190420
  4. OXAROL [Concomitant]
     Active Substance: MAXACALCITOL
     Dosage: 2.5 MICROGRAM, 3 TIMES/WK
     Route: 065
     Dates: start: 20190420
  5. OXAROL [Concomitant]
     Active Substance: MAXACALCITOL
     Dosage: 5 MICROGRAM, 2 TIMES/WK
     Route: 042
     Dates: start: 20190608
  6. PARSABIV [Suspect]
     Active Substance: ETELCALCETIDE HYDROCHLORIDE
     Indication: HYPERPARATHYROIDISM SECONDARY
     Dosage: 5 MILLIGRAM, 3 TIMES/WK
     Route: 010
     Dates: start: 20180717
  7. EPOETIN ALFA [Concomitant]
     Active Substance: ERYTHROPOIETIN
     Dosage: 3000 INTERNATIONAL UNIT, QWK
     Route: 065
     Dates: end: 20181124
  8. RENAGEL [Concomitant]
     Active Substance: SEVELAMER HYDROCHLORIDE
     Dosage: 1500 MILLIGRAM, QD
     Route: 065
     Dates: end: 20190508
  9. WARFARIN [Concomitant]
     Active Substance: WARFARIN
     Dosage: 2.5 MILLIGRAM, QD
     Route: 065
     Dates: start: 20190509
  10. EPOETIN ALFA [Concomitant]
     Active Substance: ERYTHROPOIETIN
     Dosage: 4500 INTERNATIONAL UNIT, QWK
     Route: 065
     Dates: start: 20190420
  11. OXAROL [Concomitant]
     Active Substance: MAXACALCITOL
     Dosage: 5 MICROGRAM, 3 TIMES/WK
     Route: 065
     Dates: start: 20180424, end: 20190418
  12. RENAGEL [Concomitant]
     Active Substance: SEVELAMER HYDROCHLORIDE
     Dosage: 500 MILLIGRAM, QD
     Route: 065
     Dates: start: 20190509
  13. KAYEXALATE [Concomitant]
     Active Substance: SODIUM POLYSTYRENE SULFONATE
     Dosage: 45 GRAM, QWK
     Route: 048
  14. WARFARIN [Concomitant]
     Active Substance: WARFARIN
     Dosage: 1.5 MILLIGRAM, QD
     Route: 065
     Dates: start: 20190416, end: 20190423
  15. EPOETIN ALFA [Concomitant]
     Active Substance: ERYTHROPOIETIN
     Dosage: 4500 INTERNATIONAL UNIT, QWK
     Route: 065
     Dates: start: 20181127, end: 20190418
  16. FOSRENOL [Concomitant]
     Active Substance: LANTHANUM CARBONATE
     Dosage: 1250 MILLIGRAM, QD
     Route: 048
  17. FESIN [SACCHARATED IRON OXIDE] [Concomitant]
     Dosage: 40 MILLIGRAM, QWK
     Route: 065
     Dates: end: 20181002
  18. FESIN [SACCHARATED IRON OXIDE] [Concomitant]
     Dosage: 40 MILLIGRAM, QWK
     Route: 065
     Dates: start: 20190622, end: 20190720

REACTIONS (7)
  - Otitis media [Recovered/Resolved]
  - Mitral valve incompetence [Recovering/Resolving]
  - Angina pectoris [Recovering/Resolving]
  - Decubitus ulcer [Not Recovered/Not Resolved]
  - Aortic valve stenosis [Recovering/Resolving]
  - Cardiac failure [Recovering/Resolving]
  - Skin ulcer [Not Recovered/Not Resolved]

NARRATIVE: CASE EVENT DATE: 20181116
